FAERS Safety Report 9470527 (Version 1)
Quarter: 2013Q3

REPORT INFORMATION
  Report Type: Spontaneous
  Country: US (occurrence: None)
  Receive Date: 20130820
  Receipt Date: 20130820
  Transmission Date: 20140515
  Serious: Yes (Other)
  Sender: FDA-Public Use
  Company Number: None

PATIENT
  Sex: 0

DRUGS (1)
  1. ALKA-SELTZER PLUS COLD [Suspect]
     Dates: start: 20130811

REACTIONS (5)
  - Convulsion [None]
  - Joint dislocation [None]
  - Wrong drug administered [None]
  - Rash [None]
  - Tongue blistering [None]
